FAERS Safety Report 4575270-X (Version None)
Quarter: 2005Q1

REPORT INFORMATION
  Report Type: 
  Country: None (occurrence: None)
  Receive Date: 20050127
  Receipt Date: 20050127
  Transmission Date: 20050727
  Serious: Yes (Other)
  Sender: FDA-Public Use
  Company Number: None

PATIENT
  Age: 63 Year
  Sex: Female
  Weight: 89.8122 kg

DRUGS (1)
  1. VISIPAQUE [Suspect]
     Indication: ENDOMETRIAL CANCER
     Dosage: 150 CC IV PUSH
     Route: 042
     Dates: start: 20050112

REACTIONS (2)
  - ERYTHEMA [None]
  - RASH PRURITIC [None]
